FAERS Safety Report 12125321 (Version 1)
Quarter: 2016Q1

REPORT INFORMATION
  Report Type: Spontaneous
  Country: US (occurrence: US)
  Receive Date: 20160229
  Receipt Date: 20160229
  Transmission Date: 20160526
  Serious: Yes (Hospitalization)
  Sender: FDA-Public Use
  Company Number: US-ABBVIE-15P-163-1358713-00

PATIENT
  Age: 69 Year
  Sex: Male

DRUGS (1)
  1. ANDROGEL [Suspect]
     Active Substance: TESTOSTERONE
     Indication: BLOOD TESTOSTERONE DECREASED
     Route: 065
     Dates: start: 20120823, end: 20131014

REACTIONS (8)
  - Pain [Unknown]
  - Pulmonary embolism [Unknown]
  - Impaired work ability [Unknown]
  - Deep vein thrombosis [Unknown]
  - Economic problem [Unknown]
  - Anxiety [Unknown]
  - Anhedonia [Unknown]
  - Fear [Unknown]

NARRATIVE: CASE EVENT DATE: 201310
